FAERS Safety Report 15340218 (Version 1)
Quarter: 2018Q3

REPORT INFORMATION
  Report Type: Report from Study
  Country: None (occurrence: KR)
  Receive Date: 20180831
  Receipt Date: 20180831
  Transmission Date: 20181010
  Serious: Yes (Hospitalization)
  Sender: FDA-Public Use
  Company Number: KR-ABBVIE-18K-090-2471820-00

PATIENT
  Age: 50 Year
  Sex: Male

DRUGS (6)
  1. HUMIRA [Suspect]
     Active Substance: ADALIMUMAB
     Route: 058
     Dates: start: 20180819
  2. EBASTEL [Concomitant]
     Active Substance: EBASTINE
     Indication: PROPHYLAXIS
     Route: 048
     Dates: start: 20180727
  3. HUMIRA [Suspect]
     Active Substance: ADALIMUMAB
     Indication: PSORIATIC ARTHROPATHY
     Route: 058
     Dates: start: 20180516, end: 20180516
  4. ADIPAM [Concomitant]
     Indication: PROPHYLAXIS
     Route: 048
     Dates: start: 20180126
  5. TOPISOL MILK LOTION [Concomitant]
     Indication: PSORIASIS
     Route: 061
     Dates: start: 20180727
  6. HUMIRA [Suspect]
     Active Substance: ADALIMUMAB
     Indication: PSORIASIS
     Route: 058
     Dates: start: 20180523, end: 20180715

REACTIONS (1)
  - Small intestinal perforation [Unknown]

NARRATIVE: CASE EVENT DATE: 20180730
